FAERS Safety Report 25076562 (Version 1)
Quarter: 2025Q1

REPORT INFORMATION
  Report Type: Spontaneous
  Country: US (occurrence: US)
  Receive Date: 20250313
  Receipt Date: 20250313
  Transmission Date: 20250409
  Serious: Yes (Death, Life-Threatening)
  Sender: BRACCO
  Company Number: US-BRACCO-2025US01344

PATIENT
  Age: 54 Year
  Sex: Male

DRUGS (1)
  1. ISOVUE 370 [Suspect]
     Active Substance: IOPAMIDOL
     Indication: Angiogram
     Route: 042
     Dates: start: 20250303, end: 20250303

REACTIONS (2)
  - Throat tightness [Fatal]
  - Dyspnoea [Fatal]

NARRATIVE: CASE EVENT DATE: 20250303
